FAERS Safety Report 5914890-4 (Version None)
Quarter: 2008Q4

REPORT INFORMATION
  Report Type: 
  Country: None (occurrence: None)
  Receive Date: 20081008
  Receipt Date: 20080930
  Transmission Date: 20090506
  Serious: Yes (Death, Disabling)
  Sender: FDA-Public Use
  Company Number: OSCN-PR-0809S-0546

PATIENT
  Age: 25 Year
  Sex: Male

DRUGS (2)
  1. OMNISCAN [Suspect]
     Indication: DRUG USE FOR UNKNOWN INDICATION
     Dosage: SINGLE DOSE, I.V.
     Route: 042
     Dates: start: 20060221, end: 20060221
  2. OMNISCAN [Suspect]
     Indication: DRUG USE FOR UNKNOWN INDICATION
     Dosage: SINGLE DOSE, I.V.
     Route: 042
     Dates: start: 20060411, end: 20060411

REACTIONS (10)
  - BRONCHIAL SECRETION RETENTION [None]
  - DECUBITUS ULCER [None]
  - DISEASE COMPLICATION [None]
  - GASTRIC ULCER PERFORATION [None]
  - GASTROINTESTINAL FISTULA [None]
  - HAEMORRHAGE [None]
  - MALNUTRITION [None]
  - NEPHROGENIC SYSTEMIC FIBROSIS [None]
  - PNEUMONIA [None]
  - RESPIRATORY DISTRESS [None]
